FAERS Safety Report 12297861 (Version 1)
Quarter: 2016Q2

REPORT INFORMATION
  Report Type: Spontaneous
  Country: US (occurrence: US)
  Receive Date: 20160422
  Receipt Date: 20160422
  Transmission Date: 20160815
  Serious: Yes (Other)
  Sender: FDA-Public Use
  Company Number: US-PFIZER INC-2016149712

PATIENT
  Age: 40 Year
  Sex: Female

DRUGS (7)
  1. SIROLIMUS. [Suspect]
     Active Substance: SIROLIMUS
     Dosage: 1 MG, DAILY
  2. METHYLPREDNISOLONE. [Suspect]
     Active Substance: METHYLPREDNISOLONE
     Indication: IMMUNOSUPPRESSION
     Dosage: 6 MG, ALTERNATE DAY
  3. AZATHIOPRINE. [Suspect]
     Active Substance: AZATHIOPRINE
     Indication: IMMUNOSUPPRESSION
     Dosage: 75 MG, DAILY
  4. SULFAMETHOXAZOLE AND TRIMETHOPRIM [Concomitant]
     Active Substance: SULFAMETHOXAZOLE\TRIMETHOPRIM
     Indication: MOUTH ULCERATION
     Dosage: UNK, DAILY (SINGLE-STRENGTH)
  5. SIROLIMUS. [Suspect]
     Active Substance: SIROLIMUS
     Indication: IMMUNOSUPPRESSION
     Dosage: UNK, CYCLIC (2 MG DAILY FOR 3 DAYS WITH 1 MG DAILY ON THE FOURTH DAY GIVEN CYCLICALLY)
     Dates: start: 2000
  6. METHYLPREDNISOLONE. [Suspect]
     Active Substance: METHYLPREDNISOLONE
     Dosage: 6 MG, ALTERNATE DAY
  7. ACYCLOVIR. [Concomitant]
     Active Substance: ACYCLOVIR
     Indication: MOUTH ULCERATION
     Dosage: 800 MG, 2X/DAY

REACTIONS (2)
  - Mycobacterium avium complex infection [Recovering/Resolving]
  - Tubulointerstitial nephritis [Recovering/Resolving]
